FAERS Safety Report 5529762-7 (Version None)
Quarter: 2007Q4

REPORT INFORMATION
  Report Type: 
  Country: None (occurrence: None)
  Receive Date: 20071127
  Receipt Date: 20071119
  Transmission Date: 20080405
  Serious: No
  Sender: FDA-Public Use
  Company Number: 154704USA

PATIENT
  Sex: Female

DRUGS (3)
  1. COPAXONE [Suspect]
     Indication: MULTIPLE SCLEROSIS
     Dosage: 20 MG, SUBCUTANEOUS
     Route: 058
     Dates: start: 20030101, end: 20070427
  2. VITAMIN CAP [Concomitant]
  3. FLUOXETINE HYDROCHLORIDE [Concomitant]

REACTIONS (3)
  - DYSPNOEA EXERTIONAL [None]
  - HYPERSENSITIVITY [None]
  - LYMPHADENOPATHY [None]
